FAERS Safety Report 21475176 (Version 1)
Quarter: 2022Q4

REPORT INFORMATION
  Report Type: Spontaneous
  Country: US (occurrence: US)
  Receive Date: 20221019
  Receipt Date: 20221019
  Transmission Date: 20230112
  Serious: No
  Sender: FDA-Public Use
  Company Number: US-ALLERGAN-2132866US

PATIENT
  Sex: Male

DRUGS (1)
  1. LINZESS [Suspect]
     Active Substance: LINACLOTIDE
     Indication: Constipation
     Dosage: 290 ?G, QD
     Dates: start: 2021, end: 20210926

REACTIONS (4)
  - Dehydration [Unknown]
  - Malaise [Unknown]
  - Off label use [Unknown]
  - Diarrhoea [Recovering/Resolving]
